FAERS Safety Report 4446097-4 (Version None)
Quarter: 2004Q3

REPORT INFORMATION
  Report Type: 
  Country: None (occurrence: None)
  Receive Date: 20040910
  Receipt Date: 20040813
  Transmission Date: 20050211
  Serious: Yes (Hospitalization)
  Sender: FDA-Public Use
  Company Number: PHBS2004CA10793

PATIENT
  Age: 84 Year
  Sex: Male

DRUGS (8)
  1. EXELON [Suspect]
     Indication: DEMENTIA ALZHEIMER'S TYPE
     Dosage: UNK, UNK
     Route: 048
     Dates: start: 20011101
  2. EXELON [Suspect]
     Dosage: 1.5 MG, BID
     Route: 048
     Dates: start: 20040804
  3. EXELON [Suspect]
     Dosage: 3 MG, BID
     Route: 048
  4. EXELON [Suspect]
     Dosage: 4.5 MG, BID
     Route: 048
     Dates: start: 20040812
  5. TIAZAC [Concomitant]
     Route: 065
  6. HYDRA-ZIDE [Concomitant]
     Dosage: 25 MG/D
     Route: 065
  7. ZOLOFT [Concomitant]
     Dosage: 100 MG/D
     Route: 065
  8. NOVASEN [Concomitant]
     Dosage: 325 MG/D
     Route: 065

REACTIONS (7)
  - CARDIAC DISORDER [None]
  - DISORIENTATION [None]
  - FALL [None]
  - FEELING ABNORMAL [None]
  - HYPERHIDROSIS [None]
  - SINUS BRADYCARDIA [None]
  - VOMITING [None]
